FAERS Safety Report 21499416 (Version 2)
Quarter: 2023Q2

REPORT INFORMATION
  Report Type: Report from Study
  Country: US (occurrence: US)
  Receive Date: 20221024
  Receipt Date: 20230515
  Transmission Date: 20230722
  Serious: Yes (Hospitalization, Other)
  Sender: FDA-Public Use
  Company Number: US-Horizon-KRY-0757-2020

PATIENT

DRUGS (1)
  1. KRYSTEXXA [Suspect]
     Active Substance: PEGLOTICASE
     Indication: Gouty tophus
     Dosage: FIRST INFUSION
     Route: 042
     Dates: start: 20190806

REACTIONS (12)
  - Cerebrovascular accident [Recovered/Resolved]
  - Fall [Not Recovered/Not Resolved]
  - Hypoaesthesia [Not Recovered/Not Resolved]
  - Ligament sprain [Not Recovered/Not Resolved]
  - Arthralgia [Not Recovered/Not Resolved]
  - Hernia [Not Recovered/Not Resolved]
  - Fracture [Not Recovered/Not Resolved]
  - Supraventricular tachycardia [Recovering/Resolving]
  - Blood uric acid increased [Not Recovered/Not Resolved]
  - Gout [Unknown]
  - Pain in extremity [Recovering/Resolving]
  - Product dose omission issue [Recovered/Resolved]

NARRATIVE: CASE EVENT DATE: 20200101
